FAERS Safety Report 6925102-7 (Version None)
Quarter: 2010Q3

REPORT INFORMATION
  Report Type: 
  Country: None (occurrence: None)
  Receive Date: 20100810
  Receipt Date: 20100802
  Transmission Date: 20110219
  Serious: Yes (Hospitalization, Other)
  Sender: FDA-Public Use
  Company Number: TPA2010A04369

PATIENT
  Age: 61 Year
  Sex: Female
  Weight: 122.0176 kg

DRUGS (2)
  1. ACTOS [Suspect]
     Indication: TYPE 2 DIABETES MELLITUS
     Dosage: 15 MG, 1 IN 1 D, PER ORAL
     Route: 048
     Dates: start: 20080101, end: 20100424
  2. UNKNOWN MUSCLE RELAXER (ALL OTHER THERAPEUTIC PRODUCTS) [Concomitant]

REACTIONS (6)
  - BLOOD POTASSIUM DECREASED [None]
  - COLLAPSE OF LUNG [None]
  - OEDEMA PERIPHERAL [None]
  - PNEUMONIA [None]
  - PULMONARY THROMBOSIS [None]
  - RENAL FAILURE CHRONIC [None]
